FAERS Safety Report 7243814-5 (Version None)
Quarter: 2011Q1

REPORT INFORMATION
  Report Type: 
  Country: None (occurrence: None)
  Receive Date: 20110125
  Receipt Date: 20110121
  Transmission Date: 20110831
  Serious: Yes (Life-Threatening)
  Sender: FDA-Public Use
  Company Number: DE-ASTRAZENECA-2011SE03738

PATIENT
  Age: 74 Year
  Sex: Female

DRUGS (1)
  1. IRESSA [Suspect]
     Indication: BRONCHIAL CARCINOMA
     Route: 048
     Dates: start: 20100501, end: 20101201

REACTIONS (1)
  - HEPATOTOXICITY [None]
